FAERS Safety Report 12984210 (Version 1)
Quarter: 2016Q4

REPORT INFORMATION
  Report Type: Spontaneous
  Country: US (occurrence: US)
  Receive Date: 20161129
  Receipt Date: 20161129
  Transmission Date: 20170207
  Serious: Yes (Other)
  Sender: FDA-Public Use
  Company Number: US-JNJFOC-20161122066

PATIENT
  Sex: Female
  Weight: 48.99 kg

DRUGS (5)
  1. STELARA [Suspect]
     Active Substance: USTEKINUMAB
     Indication: PSORIASIS
     Route: 058
     Dates: start: 2011
  2. STELARA [Suspect]
     Active Substance: USTEKINUMAB
     Indication: PSORIATIC ARTHROPATHY
     Route: 058
     Dates: start: 2011
  3. ZOLPIDEM [Concomitant]
     Active Substance: ZOLPIDEM\ZOLPIDEM TARTRATE
     Route: 065
     Dates: start: 2015, end: 2016
  4. KLONOPIN [Concomitant]
     Active Substance: CLONAZEPAM
     Indication: ANXIETY
     Route: 065
     Dates: start: 2016
  5. HYDROXYZINE [Concomitant]
     Active Substance: HYDROXYZINE\HYDROXYZINE HYDROCHLORIDE
     Indication: PRURITUS
     Route: 065
     Dates: start: 2016

REACTIONS (18)
  - Guttate psoriasis [Unknown]
  - Drug ineffective [Unknown]
  - Fatigue [Unknown]
  - Constipation [Unknown]
  - Upper respiratory tract infection [Unknown]
  - Pruritus [Unknown]
  - Food aversion [Unknown]
  - Parosmia [Unknown]
  - Hypomenorrhoea [Unknown]
  - Pollakiuria [Unknown]
  - Appendicitis [Recovered/Resolved]
  - Psoriasis [Not Recovered/Not Resolved]
  - Menstruation delayed [Unknown]
  - Weight fluctuation [Not Recovered/Not Resolved]
  - Nausea [Unknown]
  - Dizziness [Unknown]
  - Abnormal dreams [Unknown]
  - Headache [Unknown]
